FAERS Safety Report 4845209-8 (Version None)
Quarter: 2005Q4

REPORT INFORMATION
  Report Type: 
  Country: None (occurrence: None)
  Receive Date: 20051125
  Receipt Date: 20051115
  Transmission Date: 20060501
  Serious: Yes (Hospitalization, Other)
  Sender: FDA-Public Use
  Company Number: 2005129580

PATIENT
  Sex: Female
  Weight: 90.7194 kg

DRUGS (14)
  1. CELEBREX [Suspect]
     Indication: ARTHRALGIA
     Dosage: (200 MG), ORAL
     Route: 048
     Dates: start: 20000101
  2. CELEBREX [Suspect]
     Indication: ARTHRITIS
     Dosage: (200 MG), ORAL
     Route: 048
     Dates: start: 20000101
  3. CELEBREX [Suspect]
     Indication: OSTEOARTHRITIS
     Dosage: (200 MG), ORAL
     Route: 048
     Dates: start: 20000101
  4. BEXTRA [Suspect]
     Indication: ARTHRALGIA
     Dosage: 10 MG (10 MG, 1 IN 1 D), ORAL
     Route: 048
  5. BEXTRA [Suspect]
     Indication: ARTHRITIS
     Dosage: 10 MG (10 MG, 1 IN 1 D), ORAL
     Route: 048
  6. TEGRETOL [Concomitant]
  7. CAPTOPRIL [Concomitant]
  8. PLAQUENIL [Concomitant]
  9. WARFARIN SODIUM [Concomitant]
  10. PREVACID [Concomitant]
  11. FOSAMAX [Concomitant]
  12. GLUCOSAMINE W/CHONDROITIN SULFATES (ASCORBIC ACID, CHONDROITIN SULFATE [Concomitant]
  13. CALCIUM WITH VITAMIN D (CALCIUM PHOSPHATE, CALCIUM SODIUM LACTATE, ERG [Concomitant]
  14. VITAMIN C (VITAMIN C) [Concomitant]

REACTIONS (10)
  - ARTHRALGIA [None]
  - CARTILAGE INJURY [None]
  - COLONIC OBSTRUCTION [None]
  - CONSTIPATION [None]
  - DIVERTICULITIS [None]
  - GASTROINTESTINAL INFECTION [None]
  - INCISIONAL DRAINAGE [None]
  - INTRAOCULAR PRESSURE INCREASED [None]
  - LOWER RESPIRATORY TRACT INFECTION [None]
  - STAPHYLOCOCCAL INFECTION [None]
